FAERS Safety Report 5509815-X (Version None)
Quarter: 2007Q4

REPORT INFORMATION
  Report Type: 
  Country: None (occurrence: None)
  Receive Date: 20071026
  Receipt Date: 20070831
  Transmission Date: 20080405
  Serious: Yes (Hospitalization)
  Sender: FDA-Public Use
  Company Number: CLOF-10656

PATIENT
  Age: 69 Year
  Sex: Female

DRUGS (12)
  1. CLOFARABINE. MFR: GENZYME [Suspect]
     Indication: ACUTE MYELOID LEUKAEMIA
     Dosage: 45 MG DAILY IV
     Route: 042
     Dates: start: 20070723, end: 20070727
  2. IDARUBICIN HCL [Suspect]
     Indication: ACUTE MYELOID LEUKAEMIA
     Dosage: 20 MG DAILY IV
     Route: 042
     Dates: start: 20070723, end: 20070726
  3. ATENOLOL [Concomitant]
  4. AVELOX [Concomitant]
  5. CIPROFLOXACIN [Concomitant]
  6. FUROSEMIDE [Concomitant]
  7. HYDREA [Concomitant]
  8. K-DUR 10 [Concomitant]
  9. NAPROXEN [Concomitant]
  10. PROTONIX [Concomitant]
  11. VALTREX [Concomitant]
  12. CLARINEX [Concomitant]

REACTIONS (2)
  - DYSPNOEA [None]
  - OEDEMA PERIPHERAL [None]
